FAERS Safety Report 7804808-1 (Version None)
Quarter: 2011Q4

REPORT INFORMATION
  Report Type: 
  Country: None (occurrence: None)
  Receive Date: 20111010
  Receipt Date: 20110930
  Transmission Date: 20120403
  Serious: Yes (Other)
  Sender: FDA-Public Use
  Company Number: US-JNJFOC-2002060351

PATIENT
  Sex: Female
  Weight: 100.25 kg

DRUGS (7)
  1. CETIRIZINE HCL [Suspect]
     Indication: MULTIPLE ALLERGIES
     Dosage: FREQUENCY TEXT: DAILY DAILY DOSE QTY: 10 MG
     Route: 048
     Dates: start: 20020101, end: 20020901
  2. NIZATIDINE [Concomitant]
  3. CETIRIZINE HCL [Suspect]
     Route: 048
  4. LATANOPROST [Concomitant]
     Route: 047
  5. ZYRTEC-D 12 HOUR [Suspect]
     Indication: MULTIPLE ALLERGIES
     Dosage: FREQUENCY TEXT: DAILY
     Route: 048
     Dates: start: 20020901
  6. TRAMADOL HCL [Concomitant]
  7. DICLOFENAC SODIUM [Concomitant]

REACTIONS (5)
  - VAGINAL HAEMORRHAGE [None]
  - INSOMNIA [None]
  - DRY MOUTH [None]
  - BLOOD PRESSURE INCREASED [None]
  - HYPERSENSITIVITY [None]
